FAERS Safety Report 6710913-3 (Version None)
Quarter: 2010Q2

REPORT INFORMATION
  Report Type: 
  Country: None (occurrence: None)
  Receive Date: 20100505
  Receipt Date: 20100427
  Transmission Date: 20101027
  Serious: No
  Sender: FDA-Public Use
  Company Number: US-BIOGENIDEC-2010BI014516

PATIENT
  Age: 32 Year
  Sex: Female

DRUGS (1)
  1. TYSABRI [Suspect]
     Indication: MULTIPLE SCLEROSIS
     Route: 042
     Dates: start: 20080826, end: 20091209

REACTIONS (5)
  - COORDINATION ABNORMAL [None]
  - DYSARTHRIA [None]
  - FEELING ABNORMAL [None]
  - GAIT DISTURBANCE [None]
  - POOR VENOUS ACCESS [None]
